FAERS Safety Report 7301633-5 (Version None)
Quarter: 2011Q1

REPORT INFORMATION
  Report Type: 
  Country: None (occurrence: None)
  Receive Date: 20110218
  Receipt Date: 20110214
  Transmission Date: 20110831
  Serious: Yes (Death, Hospitalization)
  Sender: FDA-Public Use
  Company Number: BR-ACTELION-A-CH2010-41770

PATIENT
  Sex: Female

DRUGS (1)
  1. TRACLEER [Suspect]
     Dosage: 62.5 MG, BID
     Route: 048
     Dates: end: 20101103

REACTIONS (6)
  - CONVULSION [None]
  - DYSPNOEA [None]
  - CHOLELITHIASIS [None]
  - DEATH [None]
  - SWELLING [None]
  - CYANOSIS [None]
